FAERS Safety Report 9177823 (Version 2)
Quarter: 2013Q2

REPORT INFORMATION
  Report Type: Spontaneous
  Country: US (occurrence: US)
  Receive Date: 20130321
  Receipt Date: 20130402
  Transmission Date: 20140414
  Serious: Yes (Other)
  Sender: FDA-Public Use
  Company Number: US-MUTUAL PHARMACEUTICAL COMPANY, INC.-BCTM20130027

PATIENT
  Age: 41 Year
  Sex: Male
  Weight: 86.26 kg

DRUGS (11)
  1. SULFAMETHOXAZOLE AND TRIMETHOPRIM [Suspect]
     Indication: HORDEOLUM
     Route: 065
     Dates: start: 20130226, end: 20130307
  2. SUTENT [Suspect]
     Indication: NEOPLASM OF THYMUS
     Route: 065
  3. SUTENT [Suspect]
     Route: 065
     Dates: start: 20130315
  4. LISINOPRIL [Concomitant]
     Indication: PRODUCT USED FOR UNKNOWN INDICATION
     Route: 065
  5. ENTOCORT [Concomitant]
     Indication: PRODUCT USED FOR UNKNOWN INDICATION
     Route: 065
  6. METFORMIN [Concomitant]
     Indication: PRODUCT USED FOR UNKNOWN INDICATION
     Route: 065
  7. ATIVAN (LORAZEPAM) [Concomitant]
     Indication: ANXIETY
     Route: 065
     Dates: start: 20130101
  8. VITAMIN D [Concomitant]
     Indication: PRODUCT USED FOR UNKNOWN INDICATION
     Route: 065
  9. OMEGA-3 FISH OILS [Concomitant]
     Indication: PRODUCT USED FOR UNKNOWN INDICATION
     Route: 065
  10. XGEVA [Concomitant]
     Indication: PRODUCT USED FOR UNKNOWN INDICATION
     Route: 065
  11. BESIVANCE [Concomitant]
     Indication: HORDEOLUM
     Route: 047
     Dates: start: 201302

REACTIONS (4)
  - Rectal haemorrhage [Recovered/Resolved]
  - Malaise [Recovered/Resolved]
  - Drug interaction [Unknown]
  - Fatigue [Recovered/Resolved]
